FAERS Safety Report 22119054 (Version 2)
Quarter: 2023Q2

REPORT INFORMATION
  Report Type: Spontaneous
  Country: US (occurrence: US)
  Receive Date: 20230321
  Receipt Date: 20230424
  Transmission Date: 20230721
  Serious: Yes (Other)
  Sender: FDA-Public Use
  Company Number: US-MICRO LABS LIMITED-ML2023-01455

PATIENT
  Age: 82 Year
  Sex: Male

DRUGS (2)
  1. TAFLUPROST [Suspect]
     Active Substance: TAFLUPROST
     Indication: Open angle glaucoma
     Dosage: ONCE DROP IN EACH EYE, ONCE DAILY AT NIGHT
     Route: 047
  2. TAFLUPROST [Suspect]
     Active Substance: TAFLUPROST
     Dosage: ONCE DROP IN EACH EYE, ONCE DAILY AT NIGHT
     Route: 047

REACTIONS (4)
  - Corneal dystrophy [Unknown]
  - Vision blurred [Unknown]
  - Product leakage [Unknown]
  - Product packaging quantity issue [Unknown]
